FAERS Safety Report 8830358 (Version 3)
Quarter: 2013Q1

REPORT INFORMATION
  Report Type: Report from Study
  Country: JP (occurrence: JP)
  Receive Date: 20121009
  Receipt Date: 20130228
  Transmission Date: 20140127
  Serious: Yes (Other)
  Sender: FDA-Public Use
  Company Number: JP-009507513-2012SP033127

PATIENT
  Age: 54 Year
  Sex: Male
  Weight: 62 kg

DRUGS (8)
  1. PEGINTRON [Suspect]
     Indication: CHRONIC HEPATITIS C
     Dosage: 1.5MICROGRAM PER KILOGRAM, QW
     Route: 058
     Dates: start: 20120307, end: 20120516
  2. REBETOL [Suspect]
     Indication: CHRONIC HEPATITIS C
     Dosage: 800 MG, QD
     Route: 048
     Dates: start: 20120307, end: 20120417
  3. REBETOL [Suspect]
     Dosage: 600 MG, QD
     Route: 048
     Dates: start: 20120418, end: 20120502
  4. REBETOL [Suspect]
     Dosage: 400 MG, QD
     Route: 048
     Dates: start: 20120503, end: 20120523
  5. TELAVIC [Suspect]
     Indication: CHRONIC HEPATITIS C
     Dosage: 2250 MG, QD
     Route: 048
     Dates: start: 20120307, end: 20120509
  6. TELAVIC [Suspect]
     Dosage: 1500 MG, QD
     Route: 048
     Dates: start: 20120510, end: 20120523
  7. CELESTAMINE COMBINATION [Concomitant]
     Indication: RASH
     Dosage: 4 DF, QD
     Route: 048
     Dates: start: 20120313, end: 20120315
  8. NERISONA [Concomitant]
     Indication: RASH
     Dosage: UNK, PRN
     Route: 061
     Dates: start: 20120313, end: 20120315

REACTIONS (4)
  - Oedema [Recovered/Resolved]
  - Oedema [Recovered/Resolved]
  - Rash [Recovered/Resolved]
  - Rash [Recovered/Resolved]
